FAERS Safety Report 6623546-4 (Version None)
Quarter: 2010Q1

REPORT INFORMATION
  Report Type: 
  Country: None (occurrence: None)
  Receive Date: 20100305
  Receipt Date: 20100224
  Transmission Date: 20100710
  Serious: Yes (Death, Other)
  Sender: FDA-Public Use
  Company Number: M123-NO-1003S-0002

PATIENT
  Age: 62 Year
  Sex: Male

DRUGS (3)
  1. ADREVIEW [Suspect]
     Indication: METASTATIC NEOPLASM
     Dosage: SINGLE DOSE, I.V.
     Route: 042
     Dates: start: 20050521, end: 20050521
  2. HIGH DOSE OPIATES [Concomitant]
  3. SOMATOSTATIN [Concomitant]

REACTIONS (5)
  - ARTHRALGIA [None]
  - BONE MARROW FAILURE [None]
  - NUTRITIONAL CONDITION ABNORMAL [None]
  - STOMATITIS [None]
  - WEIGHT DECREASED [None]
